FAERS Safety Report 10672409 (Version 3)
Quarter: 2016Q2

REPORT INFORMATION
  Report Type: Report from Study
  Country: KR (occurrence: KR)
  Receive Date: 20141223
  Receipt Date: 20160422
  Transmission Date: 20160815
  Serious: Yes (Hospitalization)
  Sender: FDA-Public Use
  Company Number: KR-PFIZER INC-2014351983

PATIENT
  Age: 78 Year
  Sex: Male

DRUGS (2)
  1. ITOPRIDE [Concomitant]
     Active Substance: ITOPRIDE
     Indication: VOMITING
     Dosage: 150 MG, 3X/DAY
     Route: 048
     Dates: start: 20141120, end: 20141122
  2. BOSUTINIB [Suspect]
     Active Substance: BOSUTINIB
     Indication: CHRONIC MYELOID LEUKAEMIA
     Dosage: 400 MG, 1X/DAY
     Route: 048
     Dates: start: 20141023

REACTIONS (1)
  - Haematuria [Recovered/Resolved]

NARRATIVE: CASE EVENT DATE: 20141215
